FAERS Safety Report 6844255-2 (Version None)
Quarter: 2010Q3

REPORT INFORMATION
  Report Type: 
  Country: None (occurrence: None)
  Receive Date: 20100715
  Receipt Date: 20100707
  Transmission Date: 20110219
  Serious: Yes (Hospitalization)
  Sender: FDA-Public Use
  Company Number: JP-ROCHE-704932

PATIENT
  Sex: Female
  Weight: 42 kg

DRUGS (10)
  1. ACTEMRA [Suspect]
     Indication: RHEUMATOID ARTHRITIS
     Route: 041
     Dates: start: 20100315
  2. AZULFIDINE [Concomitant]
     Route: 048
     Dates: start: 20040301, end: 20100415
  3. RHEUMATREX [Concomitant]
     Route: 048
     Dates: start: 20040501, end: 20100415
  4. PREDONINE [Concomitant]
     Route: 048
     Dates: start: 20090101
  5. LOXONIN [Concomitant]
     Route: 048
     Dates: start: 20090526
  6. CYTOTEC [Concomitant]
     Route: 048
     Dates: start: 20090526
  7. ISCOTIN [Concomitant]
     Route: 048
     Dates: start: 20090630, end: 20100415
  8. ALFAROL [Concomitant]
     Route: 048
     Dates: start: 20091125, end: 20100415
  9. FAMOTIDINE [Concomitant]
     Route: 048
     Dates: start: 20091125, end: 20100415
  10. CLARITHROMYCIN [Concomitant]
     Route: 048
     Dates: start: 20091125, end: 20100415

REACTIONS (1)
  - HERPES ZOSTER OTICUS [None]
